FAERS Safety Report 16538552 (Version 1)
Quarter: 2019Q3

REPORT INFORMATION
  Report Type: Spontaneous
  Country: US (occurrence: US)
  Receive Date: 20190524
  Receipt Date: 20190524
  Transmission Date: 20191004
  Serious: No
  Sender: FDA-Public Use
  Company Number: None

PATIENT
  Age: 28 Year
  Sex: Female

DRUGS (1)
  1. TALTZ [Suspect]
     Active Substance: IXEKIZUMAB
     Dosage: ?          OTHER
     Route: 058
     Dates: start: 20190430

REACTIONS (7)
  - Rash erythematous [None]
  - Hypoaesthesia [None]
  - Rash papular [None]
  - Injection site rash [None]
  - Urticaria [None]
  - Gait disturbance [None]
  - Injection site pain [None]

NARRATIVE: CASE EVENT DATE: 20190524
